FAERS Safety Report 8612028-6 (Version None)
Quarter: 2012Q3

REPORT INFORMATION
  Report Type: 
  Country: None (occurrence: None)
  Receive Date: 20120822
  Receipt Date: 20120821
  Transmission Date: 20120928
  Serious: Yes (Death)
  Sender: FDA-Public Use
  Company Number: DE-GLAXOSMITHKLINE-D0076420A

PATIENT
  Sex: Male
  Weight: 75 kg

DRUGS (4)
  1. ARIXTRA [Suspect]
     Indication: OFF LABEL USE
     Dosage: 7.5MG PER DAY
     Route: 058
     Dates: start: 20120712, end: 20120715
  2. TORSEMIDE [Concomitant]
     Route: 065
  3. TAMSULOSIN HCL [Concomitant]
     Route: 065
  4. METOPROLOL TARTRATE [Concomitant]
     Route: 065

REACTIONS (4)
  - MULTI-ORGAN FAILURE [None]
  - SHOCK HAEMORRHAGIC [None]
  - HAEMORRHAGE [None]
  - RETROPERITONEAL HAEMATOMA [None]
